FAERS Safety Report 7412062-8 (Version None)
Quarter: 2011Q2

REPORT INFORMATION
  Report Type: 
  Country: None (occurrence: None)
  Receive Date: 20110413
  Receipt Date: 20110208
  Transmission Date: 20111010
  Serious: Yes (Death, Other)
  Sender: FDA-Public Use
  Company Number: US-BAYER-200940703NA

PATIENT
  Sex: Female
  Weight: 127.71 kg

DRUGS (23)
  1. FENTANYL [Concomitant]
     Dosage: 2CC, 1CC, 1CC
     Route: 042
     Dates: start: 20031105
  2. TRASYLOL [Suspect]
     Dosage: 25 ML, Q1HR
     Dates: start: 20031105, end: 20031105
  3. PHOSLO [Concomitant]
     Dosage: 667 MG, TID
     Route: 048
  4. NOVOLIN [INSULIN] [Concomitant]
     Dosage: 70/30
     Route: 058
  5. REGULAR INSULIN [Concomitant]
     Dosage: 11 UNITS QPM
     Route: 058
  6. REGULAR INSULIN [Concomitant]
     Dosage: SLIDING SCALE 1 UNIT FOR EVERY 20MG/DL OVER 180
     Route: 058
  7. INSULIN [Concomitant]
     Dosage: UNK
     Route: 042
     Dates: start: 20031105
  8. METHOCARBAMOL [Concomitant]
     Dosage: 750 MG, BID
     Route: 048
  9. HUMULIN UL [Concomitant]
     Dosage: 24 U, QAM
     Route: 058
  10. HUMULIN UL [Concomitant]
     Dosage: 20 U QPM
     Route: 058
  11. NITROGLYCERIN [Concomitant]
     Indication: CHEST PAIN
     Dosage: 0.4MG AS NEEDED
     Route: 060
  12. REGULAR INSULIN [Concomitant]
     Dosage: 9 UNITS EVERY A.M.
     Route: 058
  13. CEFAZOLIN [Concomitant]
     Dosage: 1 G, UNK
     Route: 042
     Dates: start: 20031105
  14. ZOCOR [Concomitant]
     Dosage: 80 MG, QD
     Route: 048
  15. COUMADIN [Concomitant]
     Dosage: AS DIRECTED
     Route: 048
  16. NITROGLYCERIN [Concomitant]
     Dosage: 0.2MG PER HOUR NOT ON DIALYSIS
     Route: 061
  17. NIPRIDE [Concomitant]
     Dosage: UNK
     Route: 042
     Dates: start: 20031105
  18. TRASYLOL [Suspect]
     Indication: CORONARY ARTERY BYPASS
     Dosage: 1 ML, TEST DOSE
     Route: 042
     Dates: start: 20031105, end: 20031105
  19. HYDROCODONE [Concomitant]
     Indication: BACK PAIN
     Dosage: 5/500MG 1-2 TABLETS Q 3-4 HOURS
  20. GLUCAGON [Concomitant]
     Dosage: UNK UNK, PRN
  21. DOBUTAMINE HCL [Concomitant]
     Dosage: 27 CC/HR
     Route: 042
     Dates: start: 20031105
  22. TRASYLOL [Suspect]
     Dosage: 100 ML, LOADING DOSE
     Route: 042
     Dates: start: 20031105, end: 20031105
  23. LASIX [Concomitant]
     Dosage: 40 MG, BID
     Route: 048

REACTIONS (13)
  - RENAL FAILURE [None]
  - RENAL INJURY [None]
  - EMOTIONAL DISTRESS [None]
  - STRESS [None]
  - FEAR [None]
  - MULTI-ORGAN FAILURE [None]
  - UNEVALUABLE EVENT [None]
  - DEATH [None]
  - ANXIETY [None]
  - PAIN [None]
  - ANHEDONIA [None]
  - RENAL IMPAIRMENT [None]
  - INJURY [None]
